FAERS Safety Report 8881789 (Version 2)
Quarter: 2012Q4

REPORT INFORMATION
  Report Type: 
  Country: US (occurrence: US)
  Receive Date: 20121101
  Receipt Date: 20121112
  Transmission Date: 20130627
  Serious: No
  Sender: FDA-Public Use
  Company Number: US-PFIZER INC-2012269304

PATIENT
  Age: 52 Year
  Sex: Female

DRUGS (6)
  1. NEURONTIN [Suspect]
     Indication: NUMBNESS IN LEG
     Dosage: 300 mg, 1x/day
     Route: 048
     Dates: start: 201209, end: 201209
  2. FLEXERIL [Concomitant]
     Dosage: UNK
  3. REQUIP [Concomitant]
     Dosage: UNK
  4. LIPITOR [Concomitant]
     Dosage: UNK
  5. ULTRAM [Concomitant]
     Dosage: UNK
  6. ZANTAC [Concomitant]
     Dosage: UNK

REACTIONS (2)
  - Dizziness [Recovered/Resolved]
  - Headache [Recovered/Resolved]
